FAERS Safety Report 17371546 (Version 1)
Quarter: 2020Q1

REPORT INFORMATION
  Report Type: Spontaneous
  Country: ES (occurrence: ES)
  Receive Date: 20200205
  Receipt Date: 20200205
  Transmission Date: 20200409
  Serious: Yes (Hospitalization)
  Sender: FDA-Public Use
  Company Number: ES-PFIZER INC-2020045064

PATIENT
  Age: 14 Year
  Sex: Female

DRUGS (2)
  1. SIROLIMUS. [Suspect]
     Active Substance: SIROLIMUS
     Indication: MULTIVISCERAL TRANSPLANTATION
     Dosage: 1.6 MG, 1X/DAY (EVERY 24 HOURS)
     Route: 048
     Dates: start: 20180202, end: 20190809
  2. MODIGRAF [Suspect]
     Active Substance: TACROLIMUS
     Indication: MULTIVISCERAL TRANSPLANTATION
     Dosage: 2 MG, 1X/DAY
     Route: 048
     Dates: start: 20120202

REACTIONS (5)
  - Product use in unapproved indication [Unknown]
  - Viral diarrhoea [Recovered/Resolved]
  - Off label use [Unknown]
  - Product use issue [Unknown]
  - Hypovolaemic shock [Recovered/Resolved]

NARRATIVE: CASE EVENT DATE: 20180202
